FAERS Safety Report 12728603 (Version 1)
Quarter: 2016Q3

REPORT INFORMATION
  Report Type: Spontaneous
  Country: US (occurrence: US)
  Receive Date: 20160907
  Receipt Date: 20160907
  Transmission Date: 20161109
  Serious: Yes (Other)
  Sender: FDA-Public Use
  Company Number: None

PATIENT
  Age: 43 Year
  Sex: Female
  Weight: 58.5 kg

DRUGS (1)
  1. TIZANIDINE. [Suspect]
     Active Substance: TIZANIDINE
     Indication: NECK INJURY
     Dosage: OTHER STRENGTH:;OTHER DOSE:1 TABLET;OTHER FREQUENCY:;OTHER ROUTE:
     Route: 048
     Dates: start: 20150615

REACTIONS (1)
  - Alopecia [None]

NARRATIVE: CASE EVENT DATE: 20160907
